FAERS Safety Report 25939427 (Version 1)
Quarter: 2025Q4

REPORT INFORMATION
  Report Type: 
  Country: CN (occurrence: CN)
  Receive Date: 20251020
  Receipt Date: 20251020
  Transmission Date: 20260118
  Serious: Yes (Hospitalization)
  Sender: JIANGSU HANSOH PHARMACEUTICAL GROUP CO., LTD.
  Company Number: CN-Hansoh-20252190018690

PATIENT
  Age: 66 Year
  Sex: Female
  Weight: 41 kg

DRUGS (3)
  1. IVONESCIMAB [Suspect]
     Active Substance: IVONESCIMAB
     Indication: Lung neoplasm malignant
     Dosage: 800 MG, QD
     Route: 041
     Dates: start: 20250908, end: 20250908
  2. CARBOPLATIN [Suspect]
     Active Substance: CARBOPLATIN
     Indication: Lung neoplasm malignant
     Dosage: 480 MG, QD
     Route: 041
     Dates: start: 20250908, end: 20250908
  3. PEMETREXED DISODIUM [Suspect]
     Active Substance: PEMETREXED DISODIUM
     Indication: Lung neoplasm malignant
     Dosage: 0.65G,QD
     Route: 041
     Dates: start: 20250908, end: 20250908

REACTIONS (3)
  - Myelosuppression [Recovering/Resolving]
  - Thrombocytopenic purpura [Recovered/Resolved]
  - Rash pruritic [Recovered/Resolved]

NARRATIVE: CASE EVENT DATE: 20250914
